FAERS Safety Report 10053727 (Version 2)
Quarter: 2014Q2

REPORT INFORMATION
  Report Type: Report from Study
  Country: None (occurrence: JP)
  Receive Date: 20140402
  Receipt Date: 20140402
  Transmission Date: 20141212
  Serious: Yes (Life-Threatening, Other)
  Sender: FDA-Public Use
  Company Number: CELGENEUS-087-21880-10112918

PATIENT
  Age: 66 Year
  Sex: Male

DRUGS (69)
  1. REVLIMID [Suspect]
     Indication: PLASMA CELL MYELOMA
     Dosage: 25 MILLIGRAM
     Route: 048
     Dates: start: 20101014, end: 20101103
  2. REVLIMID [Suspect]
     Dosage: 25 MILLIGRAM
     Route: 048
     Dates: start: 20101111, end: 20101201
  3. REVLIMID [Suspect]
     Dosage: 25 MILLIGRAM
     Route: 048
     Dates: start: 20101209, end: 20101229
  4. REVLIMID [Suspect]
     Dosage: 25 MILLIGRAM
     Route: 048
     Dates: start: 20110106, end: 20110126
  5. REVLIMID [Suspect]
     Dosage: 25 MILLIGRAM
     Route: 048
     Dates: start: 20110203, end: 20110223
  6. REVLIMID [Suspect]
     Dosage: 25 MILLIGRAM
     Route: 048
     Dates: start: 20110303, end: 20110323
  7. REVLIMID [Suspect]
     Dosage: 25 MILLIGRAM
     Route: 048
     Dates: start: 20110331, end: 20110420
  8. REVLIMID [Suspect]
     Dosage: 25 MILLIGRAM
     Route: 048
     Dates: start: 20110428, end: 20110518
  9. REVLIMID [Suspect]
     Dosage: 25 MILLIGRAM
     Route: 048
     Dates: start: 20110526, end: 20110615
  10. REVLIMID [Suspect]
     Dosage: 25 MILLIGRAM
     Route: 048
     Dates: start: 20110623, end: 20110713
  11. REVLIMID [Suspect]
     Dosage: 25 MILLIGRAM
     Route: 048
     Dates: start: 20110721, end: 20110810
  12. REVLIMID [Suspect]
     Dosage: 25 MILLIGRAM
     Route: 048
     Dates: start: 20110818, end: 20110907
  13. REVLIMID [Suspect]
     Dosage: 25 MILLIGRAM
     Route: 048
     Dates: start: 20110915, end: 20111005
  14. REVLIMID [Suspect]
     Dosage: 25 MILLIGRAM
     Route: 048
     Dates: start: 20111013, end: 20111102
  15. REVLIMID [Suspect]
     Dosage: 25 MILLIGRAM
     Route: 048
     Dates: start: 20111110, end: 20111130
  16. REVLIMID [Suspect]
     Dosage: 25 MILLIGRAM
     Route: 048
     Dates: start: 20111208, end: 20111228
  17. REVLIMID [Suspect]
     Dosage: 25 MILLIGRAM
     Route: 048
     Dates: start: 20120105, end: 20120125
  18. REVLIMID [Suspect]
     Dosage: 25 MILLIGRAM
     Route: 048
     Dates: start: 20120202, end: 20120222
  19. REVLIMID [Suspect]
     Dosage: 25 MILLIGRAM
     Route: 048
     Dates: start: 20120301, end: 20120321
  20. REVLIMID [Suspect]
     Dosage: 25 MILLIGRAM
     Route: 048
     Dates: start: 20120329, end: 20120418
  21. REVLIMID [Suspect]
     Dosage: 25 MILLIGRAM
     Route: 048
     Dates: start: 20120426, end: 20120516
  22. REVLIMID [Suspect]
     Dosage: 25 MILLIGRAM
     Route: 048
     Dates: start: 20120524, end: 20120613
  23. REVLIMID [Suspect]
     Dosage: 25 MILLIGRAM
     Route: 048
     Dates: start: 20120621, end: 20120711
  24. REVLIMID [Suspect]
     Dosage: 25 MILLIGRAM
     Route: 048
     Dates: start: 20120719, end: 20120808
  25. REVLIMID [Suspect]
     Dosage: 15 MILLIGRAM
     Route: 048
     Dates: start: 20120816, end: 20120905
  26. REVLIMID [Suspect]
     Dosage: 15 MILLIGRAM
     Route: 048
     Dates: start: 20120913, end: 20121003
  27. REVLIMID [Suspect]
     Dosage: 15 MILLIGRAM
     Route: 048
     Dates: start: 20121206, end: 20121226
  28. REVLIMID [Suspect]
     Dosage: 15 MILLIGRAM
     Route: 048
     Dates: start: 20130110, end: 20130130
  29. REVLIMID [Suspect]
     Dosage: 25 MILLIGRAM
     Route: 048
     Dates: start: 20130404, end: 20130424
  30. LENADEX [Suspect]
     Indication: PLASMA CELL MYELOMA
     Dosage: 40 MILLIGRAM
     Route: 048
     Dates: start: 20101014, end: 20101102
  31. LENADEX [Suspect]
     Dosage: 40 MILLIGRAM
     Route: 048
     Dates: start: 20101112, end: 20101115
  32. LENADEX [Suspect]
     Dosage: 40 MILLIGRAM
     Route: 048
     Dates: start: 20101120, end: 20101123
  33. LENADEX [Suspect]
     Dosage: 40 MILLIGRAM
     Route: 048
     Dates: start: 20101210, end: 20101213
  34. LENADEX [Suspect]
     Dosage: 40 MILLIGRAM
     Route: 048
     Dates: start: 20110107, end: 20110110
  35. LENADEX [Suspect]
     Dosage: 40 MILLIGRAM
     Route: 048
     Dates: start: 20110121, end: 20110124
  36. LENADEX [Suspect]
     Dosage: 40 MILLIGRAM
     Route: 048
     Dates: start: 20110204, end: 20110207
  37. LENADEX [Suspect]
     Dosage: 5.7143 MILLIGRAM
     Route: 048
     Dates: start: 20110304, end: 20110325
  38. LENADEX [Suspect]
     Dosage: 5.7143 MILLIGRAM
     Route: 048
     Dates: start: 20110401, end: 20111007
  39. LENADEX [Suspect]
     Dosage: 5.7143 MILLIGRAM
     Route: 048
     Dates: start: 20111014, end: 20120316
  40. LENADEX [Suspect]
     Dosage: 5.7143 MILLIGRAM
     Route: 048
     Dates: start: 20120330, end: 20120413
  41. LENADEX [Suspect]
     Dosage: 5.7143 MILLIGRAM
     Route: 048
     Dates: start: 20120427, end: 20120511
  42. LENADEX [Suspect]
     Dosage: 5.7143 MILLIGRAM
     Route: 048
     Dates: start: 20120525, end: 20120608
  43. LENADEX [Suspect]
     Dosage: 5.7143 MILLIGRAM
     Route: 048
     Dates: start: 20120622, end: 20120706
  44. LENADEX [Suspect]
     Dosage: 5.7143 MILLIGRAM
     Route: 048
     Dates: start: 20120720, end: 20120803
  45. LENADEX [Suspect]
     Dosage: 5.7143 MILLIGRAM
     Route: 048
     Dates: start: 20120817, end: 20120831
  46. LENADEX [Suspect]
     Dosage: 5.7143 MILLIGRAM
     Route: 048
     Dates: start: 20120914, end: 20120928
  47. LENADEX [Suspect]
     Dosage: 2.8571 MILLIGRAM
     Route: 048
     Dates: start: 20121207, end: 20121221
  48. LENADEX [Suspect]
     Dosage: 2.8571 MILLIGRAM
     Route: 048
     Dates: start: 20130111, end: 20130125
  49. LENADEX [Suspect]
     Dosage: 2.8571 MILLIGRAM
     Route: 048
     Dates: start: 20130405, end: 20130419
  50. MUCOSTA [Concomitant]
     Indication: PROPHYLAXIS
     Dosage: 300 MILLIGRAM
     Route: 048
     Dates: end: 20110413
  51. CALCIUM LACTATE [Concomitant]
     Indication: PROPHYLAXIS
     Dosage: 2 MILLIGRAM
     Route: 048
     Dates: end: 20110413
  52. CRESTOR [Concomitant]
     Indication: HYPERLIPIDAEMIA
     Dosage: 5 MILLIGRAM
     Route: 048
     Dates: start: 20090416, end: 20130828
  53. GASTER D [Concomitant]
     Indication: PROPHYLAXIS
     Dosage: 20 MILLIGRAM
     Route: 048
     Dates: start: 20090420, end: 20131011
  54. METHYCOBAL [Concomitant]
     Indication: NEUROPATHY PERIPHERAL
     Dosage: 1500 MICROGRAM
     Route: 048
     Dates: start: 20090924, end: 20110413
  55. METHYCOBAL [Concomitant]
     Dosage: 1500 MICROGRAM
     Route: 048
     Dates: start: 20110623, end: 20131011
  56. LYRICA [Concomitant]
     Indication: NEUROPATHY PERIPHERAL
     Dosage: 150 MILLIGRAM
     Route: 048
     Dates: start: 20101014, end: 20130828
  57. LYRICA [Concomitant]
     Dosage: 225 MILLIGRAM
     Route: 048
     Dates: start: 20130829, end: 20131011
  58. PURESENNID [Concomitant]
     Indication: CONSTIPATION
     Dosage: 24 MILLIGRAM
     Route: 048
     Dates: start: 20101028, end: 20101110
  59. PURESENNID [Concomitant]
     Dosage: 24 MILLIGRAM
     Route: 048
     Dates: start: 20110203, end: 20110316
  60. PURESENNID [Concomitant]
     Dosage: 24 MILLIGRAM
     Route: 048
     Dates: start: 20110526, end: 20121010
  61. MAGLAX [Concomitant]
     Indication: CONSTIPATION
     Dosage: 1980 MILLIGRAM
     Route: 048
     Dates: start: 20101111, end: 20110302
  62. MAGLAX [Concomitant]
     Dosage: 1980 MILLIGRAM
     Route: 048
     Dates: start: 20110414, end: 20121010
  63. MAGLAX [Concomitant]
     Dosage: 1980 MILLIGRAM
     Route: 048
     Dates: start: 20121206, end: 20130731
  64. MAGLAX [Concomitant]
     Dosage: 750 MILLIGRAM
     Route: 048
     Dates: start: 20130801, end: 20131011
  65. TSUMURA DAIKENCHUTO EXTRACT [Concomitant]
     Indication: PROPHYLAXIS
     Dosage: 7.5 GRAM
     Route: 048
     Dates: start: 20130801, end: 20131111
  66. FEBURIC [Concomitant]
     Indication: PROPHYLAXIS
     Dosage: 10 MILLIGRAM
     Route: 048
     Dates: start: 20130826, end: 20131011
  67. BAKTAR [Concomitant]
     Indication: PROPHYLAXIS
     Dosage: 1 TABLET
     Route: 048
     Dates: start: 20130829, end: 20131011
  68. DIFLUCAN [Concomitant]
     Indication: PROPHYLAXIS
     Dosage: 100 MILLIGRAM
     Route: 048
     Dates: start: 20130829, end: 20131011
  69. ZOVIRAX [Concomitant]
     Indication: PROPHYLAXIS
     Dosage: 200 MILLIGRAM
     Route: 048
     Dates: start: 20130829, end: 20131011

REACTIONS (10)
  - Bladder cancer [Not Recovered/Not Resolved]
  - Cardiac failure congestive [Not Recovered/Not Resolved]
  - Oral candidiasis [Recovered/Resolved]
  - Platelet count decreased [Recovered/Resolved]
  - Platelet count decreased [Recovered/Resolved]
  - Neuropathy peripheral [Not Recovered/Not Resolved]
  - Neuropathy peripheral [Not Recovered/Not Resolved]
  - Haematuria [Not Recovered/Not Resolved]
  - Hyperglycaemia [Recovering/Resolving]
  - Urinary tract infection [Not Recovered/Not Resolved]
